FAERS Safety Report 8560149-9 (Version None)
Quarter: 2012Q2

REPORT INFORMATION
  Report Type: 
  Country: None (occurrence: None)
  Receive Date: 20120418
  Receipt Date: 20110617
  Transmission Date: 20120825
  Serious: Yes (Other)
  Sender: FDA-Public Use
  Company Number: PHHY2011US53500

PATIENT
  Age: 62 Year
  Sex: Female
  Weight: 74.8 kg

DRUGS (30)
  1. NOVOLOG [Suspect]
     Indication: DIABETES MELLITUS
     Dates: end: 20090101
  2. VITAMIN B (NO INGREDIENTS/SUBSTANCES) [Concomitant]
  3. DITROPAN [Concomitant]
  4. ANTIDEPRESSANTS (NO INGREDIENTS/SUBSTANCES) [Concomitant]
  5. CELEBREX [Suspect]
     Indication: RHEUMATOID ARTHRITIS
     Dosage: ORAL
     Route: 048
  6. CELEBREX [Suspect]
     Indication: OSTEOARTHRITIS
     Dosage: ORAL
     Route: 048
  7. XANAX [Concomitant]
  8. VITAMIN B6 [Concomitant]
  9. LANTUS [Concomitant]
  10. DIOVAN [Suspect]
     Indication: HYPERTENSION
     Dosage: ORAL
     Route: 048
  11. ASPIRIN [Concomitant]
  12. CELEXA [Concomitant]
  13. ATARAX [Concomitant]
  14. CHANTIX [Suspect]
     Indication: SMOKING CESSATION THERAPY
     Dosage: 0.5 MG, BID, ORAL, 0.5 MG, DAILY, ORAL, ORAL, 1 MG, BID, ORAL, 0.5 MG, DAILY, ORAL
     Route: 048
     Dates: start: 20080101
  15. CHANTIX [Suspect]
     Indication: SMOKING CESSATION THERAPY
     Dosage: 0.5 MG, BID, ORAL, 0.5 MG, DAILY, ORAL, ORAL, 1 MG, BID, ORAL, 0.5 MG, DAILY, ORAL
     Route: 048
     Dates: start: 20090901
  16. CHANTIX [Suspect]
     Indication: SMOKING CESSATION THERAPY
     Dosage: 0.5 MG, BID, ORAL, 0.5 MG, DAILY, ORAL, ORAL, 1 MG, BID, ORAL, 0.5 MG, DAILY, ORAL
     Route: 048
     Dates: start: 20090601
  17. CHANTIX [Suspect]
     Indication: SMOKING CESSATION THERAPY
     Dosage: 0.5 MG, BID, ORAL, 0.5 MG, DAILY, ORAL, ORAL, 1 MG, BID, ORAL, 0.5 MG, DAILY, ORAL
     Route: 048
     Dates: start: 20070101
  18. CHANTIX [Suspect]
     Indication: SMOKING CESSATION THERAPY
     Dosage: 0.5 MG, BID, ORAL, 0.5 MG, DAILY, ORAL, ORAL, 1 MG, BID, ORAL, 0.5 MG, DAILY, ORAL
     Route: 048
     Dates: start: 20100401, end: 20100619
  19. GLUCOTROL [Suspect]
     Indication: DIABETES MELLITUS
     Dosage: 5 MG, TID, ORAL
     Route: 048
     Dates: start: 20090101
  20. IMODIUM [Concomitant]
  21. ASCORBIC ACID [Concomitant]
  22. LASIX [Concomitant]
  23. NEURONTIN [Concomitant]
  24. LOPRESSOR [Concomitant]
  25. VASOTEC [Suspect]
     Indication: HYPERTENSION
     Dosage: ORAL
     Route: 048
  26. PRILOSEC [Concomitant]
  27. NITROGLYCERIN [Concomitant]
  28. VITAMINS (NO INGREDIENTS/SUBSTANCES) [Concomitant]
  29. CALCIUM D (CALCIUM, COLECALCIFEROL) [Concomitant]
  30. VITAMIN D [Concomitant]

REACTIONS (16)
  - SOMNOLENCE [None]
  - BLOOD IRON DECREASED [None]
  - BLOOD GLUCOSE INCREASED [None]
  - NAUSEA [None]
  - DRY SKIN [None]
  - FRUSTRATION [None]
  - DYSSTASIA [None]
  - TREMOR [None]
  - DEPRESSION [None]
  - HYPERTENSION [None]
  - DRUG HYPERSENSITIVITY [None]
  - VOMITING [None]
  - DECREASED APPETITE [None]
  - ABDOMINAL DISCOMFORT [None]
  - PRURITUS [None]
  - STRESS [None]
